FAERS Safety Report 15963564 (Version 1)
Quarter: 2019Q1

REPORT INFORMATION
  Report Type: Spontaneous
  Country: US (occurrence: US)
  Receive Date: 20190214
  Receipt Date: 20190214
  Transmission Date: 20190417
  Serious: No
  Sender: FDA-Public Use
  Company Number: US-PFIZER INC-2019023608

PATIENT
  Age: 68 Year
  Sex: Female
  Weight: 73.47 kg

DRUGS (3)
  1. FENOFIBRATE. [Concomitant]
     Active Substance: FENOFIBRATE
     Indication: TYPE 2 DIABETES MELLITUS
     Dosage: 145 MG, 1X/DAY
     Route: 048
     Dates: start: 201806
  2. SERTRALINE HCL [Suspect]
     Active Substance: SERTRALINE HYDROCHLORIDE
     Dosage: UNK
  3. LEVOTHYROXINE SODIUM. [Suspect]
     Active Substance: LEVOTHYROXINE SODIUM
     Indication: HYPOTHYROIDISM
     Dosage: 50 UG, 1X/DAY
     Route: 048
     Dates: start: 20180518

REACTIONS (4)
  - Swelling of eyelid [Not Recovered/Not Resolved]
  - Ear pruritus [Unknown]
  - Pruritus [Unknown]
  - Cardiac murmur [Recovered/Resolved]

NARRATIVE: CASE EVENT DATE: 201806
